FAERS Safety Report 22927221 (Version 2)
Quarter: 2024Q1

REPORT INFORMATION
  Report Type: Other
  Country: CA (occurrence: None)
  Receive Date: 20230911
  Receipt Date: 20240112
  Transmission Date: 20240410
  Serious: Yes (Other)
  Sender: FDA-Public Use
  Company Number: CA-ROCHE-3416264

PATIENT

DRUGS (3)
  1. RITUXIMAB [Suspect]
     Active Substance: RITUXIMAB
     Indication: Waldenstrom^s macroglobulinaemia
     Route: 065
  2. BENDAMUSTINE [Suspect]
     Active Substance: BENDAMUSTINE
     Indication: Waldenstrom^s macroglobulinaemia
     Route: 065
  3. ACALABRUTINIB [Suspect]
     Active Substance: ACALABRUTINIB
     Indication: Waldenstrom^s macroglobulinaemia
     Route: 065

REACTIONS (11)
  - Neutropenia [Unknown]
  - Febrile neutropenia [Unknown]
  - Hypersensitivity [Unknown]
  - Intestinal obstruction [Unknown]
  - Pneumonia [Unknown]
  - Pyrexia [Unknown]
  - Atrial fibrillation [Unknown]
  - Hypertransaminasaemia [Unknown]
  - Cellulitis [Unknown]
  - Fatigue [Unknown]
  - Emphysema [Unknown]
